FAERS Safety Report 15504107 (Version 1)
Quarter: 2018Q4

REPORT INFORMATION
  Report Type: Spontaneous
  Country: US (occurrence: US)
  Receive Date: 20181016
  Receipt Date: 20181016
  Transmission Date: 20190205
  Serious: No
  Sender: FDA-Public Use
  Company Number: US-AMGEN INC.-USASP2018122325

PATIENT
  Age: 54 Year
  Sex: Female
  Weight: 47.62 kg

DRUGS (7)
  1. AIMOVIG [Suspect]
     Active Substance: ERENUMAB-AOOE
     Indication: MIGRAINE
     Dosage: 70 MG, QMO
     Route: 065
     Dates: start: 20180723, end: 20180824
  2. TIZANIDINE HCL [Concomitant]
     Active Substance: TIZANIDINE HYDROCHLORIDE
     Dosage: 2 MG, QHS AS NEEDED
     Route: 048
  3. BIOTON [Concomitant]
     Dosage: 1000 MUG, BID
  4. MAGNESIUM CHLORIDE. [Concomitant]
     Active Substance: MAGNESIUM CHLORIDE
     Dosage: 64 TO 112 MG (EVERY NIGHT)
  5. MAXALT [Concomitant]
     Active Substance: RIZATRIPTAN BENZOATE
     Indication: MIGRAINE
     Dosage: 10 MG, AS NECESSARY (REPEAT AFTER 2 HOURS)
  6. TOPAMAX [Concomitant]
     Active Substance: TOPIRAMATE
     Dosage: 25 MG, UNK (FOUR EVERY MORNING AND TWO EVERY EVENING)
     Route: 048
  7. ONDANSETRON HCL [Concomitant]
     Active Substance: ONDANSETRON HYDROCHLORIDE
     Indication: NAUSEA
     Dosage: 4 MG, Q8H  (ONE TO TWO)
     Route: 048

REACTIONS (15)
  - Dehydration [Not Recovered/Not Resolved]
  - Nausea [Unknown]
  - Muscle spasms [Unknown]
  - Ocular discomfort [Unknown]
  - Peripheral swelling [Not Recovered/Not Resolved]
  - Accidental exposure to product [Unknown]
  - Underdose [Unknown]
  - Arthralgia [Not Recovered/Not Resolved]
  - Insomnia [Unknown]
  - Paranasal sinus discomfort [Unknown]
  - Dry mouth [Unknown]
  - Headache [Unknown]
  - General physical health deterioration [Not Recovered/Not Resolved]
  - Fatigue [Not Recovered/Not Resolved]
  - Confusional state [Unknown]

NARRATIVE: CASE EVENT DATE: 2018
